FAERS Safety Report 24552677 (Version 2)
Quarter: 2025Q1

REPORT INFORMATION
  Report Type: Report from Study
  Country: US (occurrence: US)
  Receive Date: 20241027
  Receipt Date: 20250107
  Transmission Date: 20250408
  Serious: Yes (Other)
  Sender: ALEXION PHARMACEUTICALS
  Company Number: US-AstraZeneca-CH-00728087A

PATIENT

DRUGS (4)
  1. OSIMERTINIB [Suspect]
     Active Substance: OSIMERTINIB
  2. OSIMERTINIB [Suspect]
     Active Substance: OSIMERTINIB
     Route: 048
  3. OSIMERTINIB [Suspect]
     Active Substance: OSIMERTINIB
  4. OSIMERTINIB [Suspect]
     Active Substance: OSIMERTINIB
     Route: 048

REACTIONS (1)
  - Dementia Alzheimer^s type [Unknown]
